FAERS Safety Report 13150200 (Version 2)
Quarter: 2017Q1

REPORT INFORMATION
  Report Type: Spontaneous
  Country: US (occurrence: US)
  Receive Date: 20170125
  Receipt Date: 20170214
  Transmission Date: 20170428
  Serious: Yes (Other)
  Sender: FDA-Public Use
  Company Number: US-BAYER-2017-014603

PATIENT
  Sex: Male
  Weight: 86.17 kg

DRUGS (3)
  1. BAYER LOW DOSE [Suspect]
     Active Substance: ASPIRIN
     Indication: PAIN
     Dosage: UNK, QD
     Route: 048
  2. BAYER ASPIRIN [Suspect]
     Active Substance: ASPIRIN
     Indication: PAIN
     Dosage: 1-2 TABLETS
     Route: 048
  3. BAYER LOW DOSE [Suspect]
     Active Substance: ASPIRIN
     Indication: PAIN
     Dosage: 4 DF, Q4HR
     Route: 048

REACTIONS (4)
  - Wrong technique in product usage process [Unknown]
  - Gastric ulcer [Unknown]
  - Epigastric discomfort [Recovered/Resolved]
  - Abdominal discomfort [Unknown]
